FAERS Safety Report 9536254 (Version 2)
Quarter: 2013Q4

REPORT INFORMATION
  Report Type: Spontaneous
  Country: GB (occurrence: GB)
  Receive Date: 20130919
  Receipt Date: 20131007
  Transmission Date: 20140711
  Serious: Yes (Other)
  Sender: FDA-Public Use
  Company Number: GB-ACCORD-019500

PATIENT
  Age: 78 Year
  Sex: Male

DRUGS (4)
  1. AMLODIPINE [Suspect]
     Indication: HYPERTENSION
  2. SIMVASTATIN [Concomitant]
  3. ATENOLOL [Concomitant]
  4. TAFLUPROST [Concomitant]
     Indication: GLAUCOMA
     Route: 061

REACTIONS (1)
  - Pemphigoid [Recovered/Resolved]
